FAERS Safety Report 18585401 (Version 1)
Quarter: 2020Q4

REPORT INFORMATION
  Report Type: Spontaneous
  Country: CN (occurrence: CN)
  Receive Date: 20201207
  Receipt Date: 20201207
  Transmission Date: 20210114
  Serious: Yes (Hospitalization, Other)
  Sender: FDA-Public Use
  Company Number: CN-PFIZER INC-2020476343

PATIENT
  Age: 2 Year
  Sex: Male

DRUGS (3)
  1. METHYLPREDNISOLONE SODIUM SUCCINATE. [Suspect]
     Active Substance: METHYLPREDNISOLONE SODIUM SUCCINATE
     Indication: SYMPTOMATIC TREATMENT
     Dosage: 17 MG
     Route: 041
     Dates: start: 202009, end: 202009
  2. CEFOPERAZONE SODIUM/SULBACTAM SODIUM [Suspect]
     Active Substance: CEFOPERAZONE SODIUM\SULBACTAM SODIUM
     Indication: COUGH
     Dosage: 0.85G
     Route: 041
     Dates: start: 202009, end: 202009
  3. AMBROXOL [Suspect]
     Active Substance: AMBROXOL
     Indication: SYMPTOMATIC TREATMENT
     Dosage: 7.5 MG
     Route: 041
     Dates: start: 202009, end: 202009

REACTIONS (2)
  - Drug ineffective [Unknown]
  - Pneumonia mycoplasmal [Unknown]

NARRATIVE: CASE EVENT DATE: 202009
